FAERS Safety Report 7516445-7 (Version None)
Quarter: 2011Q2

REPORT INFORMATION
  Report Type: 
  Country: None (occurrence: None)
  Receive Date: 20110601
  Receipt Date: 20110523
  Transmission Date: 20111010
  Serious: Yes (Other)
  Sender: FDA-Public Use
  Company Number: JP-BRACCO-004473

PATIENT
  Sex: Male
  Weight: 16 kg

DRUGS (6)
  1. IOPAMIDOL [Suspect]
     Route: 065
     Dates: start: 20110126, end: 20110126
  2. ROCURONIUM BROMIDE [Suspect]
     Indication: HYPOTONIA
     Route: 042
     Dates: start: 20110126, end: 20110126
  3. IOPAMIDOL [Suspect]
     Indication: FISTULA REPAIR
     Dosage: WITH A TWO-FOLD DILUTION
     Route: 054
     Dates: start: 20110126, end: 20110126
  4. SEISHOKU [Concomitant]
     Dates: start: 20110126
  5. IOPAMIDOL [Suspect]
     Indication: COMPUTERISED TOMOGRAM
     Route: 066
     Dates: start: 20110126, end: 20110126
  6. RELAXIN [Concomitant]
     Dates: start: 20110126, end: 20110126

REACTIONS (1)
  - ANAPHYLACTOID REACTION [None]
